FAERS Safety Report 21875542 (Version 1)
Quarter: 2023Q1

REPORT INFORMATION
  Report Type: Other
  Country: IT (occurrence: IT)
  Receive Date: 20230118
  Receipt Date: 20230118
  Transmission Date: 20230418
  Serious: Yes (Death, Hospitalization)
  Sender: FDA-Public Use
  Company Number: IT-MACLEODS PHARMACEUTICALS US LTD-MAC2023039245

PATIENT

DRUGS (7)
  1. CLOPIDOGREL [Suspect]
     Active Substance: CLOPIDOGREL BISULFATE
     Indication: Thrombosis prophylaxis
     Dosage: 75 MILLIGRAM, QD
     Route: 048
  2. PANTOPRAZOLE SODIUM [Suspect]
     Active Substance: PANTOPRAZOLE SODIUM
     Indication: Gastric disorder
     Dosage: 20 MILLIGRAM, QD
     Route: 048
  3. NEBIVOLOL [Suspect]
     Active Substance: NEBIVOLOL
     Indication: Hypertension
     Dosage: 5 MILLIGRAM, QD
     Route: 048
  4. RAMIPRIL [Suspect]
     Active Substance: RAMIPRIL
     Indication: Hypertension
     Dosage: UNK (YOU DON^T NOTICE)
     Route: 048
  5. DEURSIL [Suspect]
     Active Substance: URSODIOL
     Indication: Biliary dyspepsia
     Dosage: UNK (NOT KNOWN)
     Route: 065
  6. CEFTRIAXONE SODIUM [Suspect]
     Active Substance: CEFTRIAXONE SODIUM
     Indication: Biliary tract infection
     Dosage: 2 GRAM, QD (2 GRAMS IV ONLY ONCE)
     Route: 042
     Dates: start: 20221221, end: 20221221
  7. CEFTRIAXONE SODIUM [Suspect]
     Active Substance: CEFTRIAXONE SODIUM
     Indication: Cholangitis acute

REACTIONS (2)
  - Cardiac arrest [Fatal]
  - Kounis syndrome [Fatal]

NARRATIVE: CASE EVENT DATE: 20221221
